FAERS Safety Report 4496664-7 (Version None)
Quarter: 2004Q4

REPORT INFORMATION
  Report Type: 
  Country: None (occurrence: None)
  Receive Date: 20041108
  Receipt Date: 20041108
  Transmission Date: 20050328
  Serious: Yes (Other)
  Sender: FDA-Public Use
  Company Number: None

PATIENT
  Age: 51 Year
  Sex: Female
  Weight: 61.2356 kg

DRUGS (2)
  1. ZICAM    EXTREME CONGESTION [Suspect]
     Indication: PHARYNGOLARYNGEAL PAIN
     Dosage: 2 SPRAYS   TWICE A DAY   NASAL
     Route: 045
     Dates: start: 20031201, end: 20031215
  2. ZICAM    EXTREME CONGESTION [Suspect]
     Indication: SINUS HEADACHE
     Dosage: 2 SPRAYS   TWICE A DAY   NASAL
     Route: 045
     Dates: start: 20031201, end: 20031215

REACTIONS (3)
  - ANOSMIA [None]
  - DRUG INEFFECTIVE [None]
  - HEADACHE [None]
